FAERS Safety Report 6304248-0 (Version None)
Quarter: 2009Q3

REPORT INFORMATION
  Report Type: 
  Country: None (occurrence: None)
  Receive Date: 20090811
  Receipt Date: 20090730
  Transmission Date: 20100115
  Serious: Yes (Other)
  Sender: FDA-Public Use
  Company Number: FI-RANBAXY-2009RR-26081

PATIENT
  Age: 85 Year
  Sex: Female

DRUGS (2)
  1. SIMVASTATIN [Suspect]
     Dosage: 20 MG, UNK
  2. REUMACON [Suspect]
     Indication: RHEUMATOID ARTHRITIS

REACTIONS (4)
  - DRUG INTERACTION [None]
  - MUSCULAR WEAKNESS [None]
  - PAIN [None]
  - RHABDOMYOLYSIS [None]
